FAERS Safety Report 21577935 (Version 2)
Quarter: 2022Q4

REPORT INFORMATION
  Report Type: Spontaneous
  Country: US (occurrence: US)
  Receive Date: 20221110
  Receipt Date: 20221116
  Transmission Date: 20230113
  Serious: No
  Sender: FDA-Public Use
  Company Number: US-PFIZER INC-PV202200099660

PATIENT
  Age: 75 Year
  Sex: Female

DRUGS (2)
  1. XELJANZ XR [Suspect]
     Active Substance: TOFACITINIB CITRATE
     Dosage: 11 MG, DAILY
  2. METHOTREXATE [Suspect]
     Active Substance: METHOTREXATE
     Dosage: 6 DF, WEEKLY
     Dates: start: 201907

REACTIONS (6)
  - Arthralgia [Recovered/Resolved]
  - Musculoskeletal pain [Recovered/Resolved]
  - Osteoarthritis [Unknown]
  - Tendon disorder [Unknown]
  - Musculoskeletal stiffness [Unknown]
  - Infection [Unknown]
